FAERS Safety Report 16884676 (Version 2)
Quarter: 2019Q4

REPORT INFORMATION
  Report Type: Report from Study
  Country: US (occurrence: US)
  Receive Date: 20191004
  Receipt Date: 20191030
  Transmission Date: 20200122
  Serious: Yes (Death, Other)
  Sender: FDA-Public Use
  Company Number: US-BAYER-2019-180026

PATIENT
  Age: 84 Year
  Sex: Male

DRUGS (1)
  1. ADEMPAS [Suspect]
     Active Substance: RIOCIGUAT
     Indication: PULMONARY HYPERTENSION
     Dosage: 2.5 MG, TID
     Route: 048
     Dates: start: 20170224, end: 20190606

REACTIONS (6)
  - Pulmonary hypertension [None]
  - Chronic respiratory failure [None]
  - Chronic right ventricular failure [None]
  - Coronary artery disease [None]
  - Death [Fatal]
  - Seizure [None]
